FAERS Safety Report 17970661 (Version 2)
Quarter: 2021Q2

REPORT INFORMATION
  Report Type: Spontaneous
  Country: JP (occurrence: JP)
  Receive Date: 20200702
  Receipt Date: 20210628
  Transmission Date: 20210717
  Serious: Yes (Other)
  Sender: FDA-Public Use
  Company Number: JP-TEVA-2020-JP-1793192

PATIENT
  Age: 62 Year
  Sex: Male

DRUGS (4)
  1. RAMUCIRUMAB [Suspect]
     Active Substance: RAMUCIRUMAB
     Indication: SMALL CELL LUNG CANCER
     Dosage: SIXTH?LINE TREATMENT; HE RECEIVED 3 CYCLES
     Route: 065
  2. NIVOLUMAB [Suspect]
     Active Substance: NIVOLUMAB
     Indication: SMALL CELL LUNG CANCER
     Dosage: ADMINISTERED AS THE FIFTH?LINE CHEMOTHERAPY; RECEIVED 13 CYCLES
     Route: 065
  3. DOCETAXEL. [Suspect]
     Active Substance: DOCETAXEL
     Indication: SMALL CELL LUNG CANCER
     Dosage: SIXTH?LINE TREATMENT; HE RECEIVED 3 CYCLES
     Route: 065
  4. PEGFILGRASTIM [Concomitant]
     Active Substance: PEGFILGRASTIM
     Indication: PROPHYLAXIS
     Route: 065

REACTIONS (3)
  - Psoriasis [Unknown]
  - Fibrosis [Not Recovered/Not Resolved]
  - Interstitial lung disease [Recovering/Resolving]
